FAERS Safety Report 25025624 (Version 1)
Quarter: 2025Q1

REPORT INFORMATION
  Report Type: Spontaneous
  Country: US (occurrence: US)
  Receive Date: 20250228
  Receipt Date: 20250228
  Transmission Date: 20250409
  Serious: Yes (Other)
  Sender: SANOFI AVENTIS
  Company Number: US-SA-2025SA059858

PATIENT
  Sex: Male

DRUGS (13)
  1. DUPIXENT [Suspect]
     Active Substance: DUPILUMAB
     Indication: Dermatitis atopic
     Route: 058
  2. ATORVASTATIN [Concomitant]
     Active Substance: ATORVASTATIN
  3. CALCITRIOL [Concomitant]
     Active Substance: CALCITRIOL
  4. CLOBETASOL [Concomitant]
     Active Substance: CLOBETASOL
  5. FINASTERIDE [Concomitant]
     Active Substance: FINASTERIDE
  6. HYDRALAZINE [Concomitant]
     Active Substance: HYDRALAZINE HYDROCHLORIDE
  7. IRON [Concomitant]
     Active Substance: IRON
  8. LATANOPROST [Concomitant]
     Active Substance: LATANOPROST
  9. MYRBETRIQ [Concomitant]
     Active Substance: MIRABEGRON
  10. MINERALS\VITAMINS [Concomitant]
     Active Substance: MINERALS\VITAMINS
  11. ROPINIROLE [Concomitant]
     Active Substance: ROPINIROLE
  12. TORSEMIDE [Concomitant]
     Active Substance: TORSEMIDE
  13. CHLOROXINE\TRIAMCINOLONE ACETONIDE [Concomitant]
     Active Substance: CHLOROXINE\TRIAMCINOLONE ACETONIDE

REACTIONS (1)
  - Pancreatic carcinoma [Not Recovered/Not Resolved]
